FAERS Safety Report 7869202-6 (Version None)
Quarter: 2011Q4

REPORT INFORMATION
  Report Type: 
  Country: None (occurrence: None)
  Receive Date: 20111028
  Receipt Date: 20101228
  Transmission Date: 20120403
  Serious: No
  Sender: FDA-Public Use
  Company Number: US-AMGEN-USASP2010012047

PATIENT
  Sex: Female

DRUGS (1)
  1. ENBREL [Suspect]
     Indication: POLYMYALGIA RHEUMATICA
     Dosage: 50 MG, QWK
     Dates: start: 20091101

REACTIONS (4)
  - SKIN BURNING SENSATION [None]
  - URTICARIA [None]
  - DRY SKIN [None]
  - PRURITUS [None]
